FAERS Safety Report 7453842-2 (Version None)
Quarter: 2011Q2

REPORT INFORMATION
  Report Type: 
  Country: None (occurrence: None)
  Receive Date: 20110502
  Receipt Date: 20110106
  Transmission Date: 20111010
  Serious: No
  Sender: FDA-Public Use
  Company Number: US-ASTRAZENECA-2011SE00979

PATIENT
  Sex: Female

DRUGS (4)
  1. NEXIUM [Suspect]
     Route: 048
     Dates: start: 20050101, end: 20090101
  2. RANITIDINE [Concomitant]
  3. PRILOSEC OTC [Suspect]
     Route: 048
  4. NEXIUM [Suspect]
     Dosage: EVERY OTHER DAY
     Route: 048

REACTIONS (6)
  - ULCER [None]
  - HERNIA [None]
  - INTESTINAL STENOSIS [None]
  - WRONG DRUG ADMINISTERED [None]
  - DYSPHONIA [None]
  - DRUG DOSE OMISSION [None]
